FAERS Safety Report 5422561-6 (Version None)
Quarter: 2007Q3

REPORT INFORMATION
  Report Type: 
  Country: None (occurrence: None)
  Receive Date: 20070822
  Receipt Date: 20070816
  Transmission Date: 20080115
  Serious: Yes (Death)
  Sender: FDA-Public Use
  Company Number: IE-ELI_LILLY_AND_COMPANY-IE200708003555

PATIENT
  Age: 42 Year
  Sex: Male

DRUGS (6)
  1. CIALIS [Suspect]
     Dosage: 20 MG, UNKNOWN
     Route: 048
  2. PERINDOPRIL ERBUMINE [Concomitant]
     Dosage: UNK, UNKNOWN
     Route: 065
  3. LIPITOR [Concomitant]
     Dosage: UNK, UNKNOWN
     Route: 065
  4. SERETIDE [Concomitant]
     Dosage: 25/50UG, UNKNOWN
     Route: 065
  5. COMBIVENT [Concomitant]
     Dosage: UNK, UNKNOWN
     Route: 065
  6. EFFEXOR [Concomitant]
     Dosage: UNK, UNKNOWN
     Route: 065

REACTIONS (3)
  - CEREBRAL HAEMORRHAGE [None]
  - CONVULSION [None]
  - FLUSHING [None]
